FAERS Safety Report 9752631 (Version 1)
Quarter: 2013Q4

REPORT INFORMATION
  Report Type: Spontaneous
  Country: US (occurrence: None)
  Receive Date: 20131212
  Receipt Date: 20131212
  Transmission Date: 20140711
  Serious: Yes (Other)
  Sender: FDA-Public Use
  Company Number: None

PATIENT
  Age: 56 Year
  Sex: Female
  Weight: 68.95 kg

DRUGS (3)
  1. LEVETIRACETAM [Suspect]
  2. VITAMIN D 1 [Concomitant]
  3. MELATONIN [Concomitant]

REACTIONS (5)
  - Product substitution issue [None]
  - Product quality issue [None]
  - Grand mal convulsion [None]
  - Insomnia [None]
  - Convulsion [None]
